FAERS Safety Report 4887466-8 (Version None)
Quarter: 2006Q1

REPORT INFORMATION
  Report Type: 
  Country: None (occurrence: None)
  Receive Date: 20060123
  Receipt Date: 20060113
  Transmission Date: 20060701
  Serious: Yes (Death, Hospitalization)
  Sender: FDA-Public Use
  Company Number: PHEH2006US01002

PATIENT
  Sex: Female

DRUGS (2)
  1. SIMULECT [Suspect]
     Indication: TRANSPLANT
     Dosage: 1 DOSE ON DAY 0
     Dates: start: 20051001, end: 20051001
  2. SIMULECT [Suspect]
     Dosage: 1 DOSE ON DAY 4
     Dates: start: 20051001, end: 20051001

REACTIONS (3)
  - DEATH [None]
  - HISTOPLASMOSIS [None]
  - NOCARDIOSIS [None]
